FAERS Safety Report 16779419 (Version 1)
Quarter: 2019Q3

REPORT INFORMATION
  Report Type: Report from Study
  Country: US (occurrence: US)
  Receive Date: 20190906
  Receipt Date: 20190906
  Transmission Date: 20191005
  Serious: Yes (Hospitalization)
  Sender: FDA-Public Use
  Company Number: US-SUN PHARMACEUTICAL INDUSTRIES LTD-2019R1-219750

PATIENT
  Age: 62 Year
  Sex: Male
  Weight: 127.2 kg

DRUGS (13)
  1. CYANOCOBALAMIN. [Concomitant]
     Active Substance: CYANOCOBALAMIN
     Indication: VITAMIN B12 DEFICIENCY
     Dosage: UNK
     Route: 065
     Dates: start: 2016
  2. SILODOSIN. [Concomitant]
     Active Substance: SILODOSIN
     Indication: BENIGN PROSTATIC HYPERPLASIA
     Dosage: UNK
     Route: 065
     Dates: start: 2016
  3. PNEUM 23-VAL [Suspect]
     Active Substance: PNEUMOCOCCAL VACCINE, POLYVALENT 23
  4. DULOXETINE. [Suspect]
     Active Substance: DULOXETINE
     Indication: MAJOR DEPRESSION
     Dosage: 60 MILLIGRAM, BID
     Route: 048
     Dates: start: 2008
  5. IBUPROFEN. [Suspect]
     Active Substance: IBUPROFEN
     Indication: LIGAMENT SPRAIN
     Dosage: 800 MILLIGRAM, PRN
     Route: 048
     Dates: start: 20190427, end: 20190605
  6. PF-06482077 [Suspect]
     Active Substance: INVESTIGATIONAL PRODUCT
     Indication: IMMUNISATION
     Dosage: 1 DOSAGE FORM
     Route: 030
     Dates: start: 20190426, end: 20190426
  7. ARIPIPRAZOLE. [Concomitant]
     Active Substance: ARIPIPRAZOLE
     Indication: MAJOR DEPRESSION
     Dosage: UNK
     Dates: start: 2008
  8. OXYBUTYNIN. [Concomitant]
     Active Substance: OXYBUTYNIN CHLORIDE
     Indication: HYPERHIDROSIS
     Dosage: UNK
     Route: 065
     Dates: start: 2018
  9. BUPROPION. [Suspect]
     Active Substance: BUPROPION
     Indication: MAJOR DEPRESSION
     Dosage: 450 MILLIGRAM, DAILY
     Route: 048
     Dates: start: 2018
  10. PNEUM 13-VAL [Suspect]
     Active Substance: PNEUMOCOCCAL 13-VALENT CONJUGATE VACCINE
     Dosage: 1 DOSAGE FORM
     Route: 030
     Dates: start: 20190524, end: 20190524
  11. LEVOTHYROXINE. [Concomitant]
     Active Substance: LEVOTHYROXINE
     Indication: HYPOTHYROIDISM
     Dosage: UNK
     Route: 065
     Dates: start: 2000
  12. PRIMIDONE. [Concomitant]
     Active Substance: PRIMIDONE
     Indication: TREMOR
     Dosage: UNK
     Route: 065
     Dates: start: 2016
  13. SOD CH (SODIUM CHLORIDE) [Suspect]
     Active Substance: SODIUM CHLORIDE

REACTIONS (1)
  - Blood loss anaemia [Recovering/Resolving]

NARRATIVE: CASE EVENT DATE: 20190605
